FAERS Safety Report 6285717-9 (Version None)
Quarter: 2009Q3

REPORT INFORMATION
  Report Type: 
  Country: None (occurrence: None)
  Receive Date: 20090724
  Receipt Date: 20090710
  Transmission Date: 20100115
  Serious: Yes (Other)
  Sender: FDA-Public Use
  Company Number: 2009S1005625

PATIENT
  Sex: Female

DRUGS (1)
  1. PHOSPHODA FLAVOR NOT SPECIFIED [Suspect]
     Dates: start: 20060101, end: 20060101

REACTIONS (1)
  - RENAL FAILURE [None]
